FAERS Safety Report 5833180-1 (Version None)
Quarter: 2008Q3

REPORT INFORMATION
  Report Type: 
  Country: None (occurrence: None)
  Receive Date: 20080805
  Receipt Date: 20080729
  Transmission Date: 20090109
  Serious: Yes (Other)
  Sender: FDA-Public Use
  Company Number: NZ-BAYER-200823499GPV

PATIENT
  Age: 58 Year
  Sex: Female

DRUGS (9)
  1. BETAFERON [Suspect]
     Indication: MULTIPLE SCLEROSIS
     Route: 058
     Dates: start: 20020501
  2. PANTOPRAZOLE SODIUM [Concomitant]
     Indication: DRUG USE FOR UNKNOWN INDICATION
  3. PREMIA/CONJUGATED OESTROGEN [Concomitant]
     Indication: DRUG USE FOR UNKNOWN INDICATION
  4. OMEGA 3 FATTY ACIDS [Concomitant]
     Indication: DRUG USE FOR UNKNOWN INDICATION
  5. GLUCOSAMINE [Concomitant]
     Indication: DRUG USE FOR UNKNOWN INDICATION
  6. ZINC [Concomitant]
     Indication: DRUG USE FOR UNKNOWN INDICATION
  7. B COMPLEX VITAMINS [Concomitant]
     Indication: DRUG USE FOR UNKNOWN INDICATION
  8. EVENING PRIMROSE OIL [Concomitant]
     Indication: DRUG USE FOR UNKNOWN INDICATION
  9. GARLIC [Concomitant]
     Indication: DRUG USE FOR UNKNOWN INDICATION

REACTIONS (1)
  - COLON CANCER STAGE III [None]
